FAERS Safety Report 6401625-4 (Version None)
Quarter: 2009Q4

REPORT INFORMATION
  Report Type: 
  Country: None (occurrence: None)
  Receive Date: 20091015
  Receipt Date: 20090930
  Transmission Date: 20100525
  Serious: Yes (Other)
  Sender: FDA-Public Use
  Company Number: BR-PFIZER INC-2009262453

PATIENT
  Age: 87 Year

DRUGS (6)
  1. FRONTAL [Suspect]
     Indication: INSOMNIA
     Dosage: 0.5 MG, 1X/DAY
     Route: 048
     Dates: start: 20090729
  2. FRONTAL [Suspect]
     Indication: SLEEP DISORDER
  3. GALANTAMINE [Concomitant]
     Dosage: UNK
  4. SEROQUEL [Concomitant]
     Dosage: UNK
  5. HALOPERIDOL [Concomitant]
     Dosage: UNK
  6. OMEPRAZOLE [Concomitant]
     Dosage: UNK

REACTIONS (10)
  - AMNESIA [None]
  - ASTHENIA [None]
  - DIZZINESS [None]
  - DYSKINESIA [None]
  - DYSSTASIA [None]
  - GAIT DISTURBANCE [None]
  - HYPERSOMNIA [None]
  - LISTLESS [None]
  - SYNCOPE [None]
  - TONGUE DISORDER [None]
